FAERS Safety Report 10571379 (Version 2)
Quarter: 2016Q1

REPORT INFORMATION
  Report Type: Spontaneous
  Country: US (occurrence: US)
  Receive Date: 20141107
  Receipt Date: 20160226
  Transmission Date: 20160525
  Serious: Yes (Other)
  Sender: FDA-Public Use
  Company Number: US-BAYER-2014-162694

PATIENT
  Age: 33 Year
  Sex: Female

DRUGS (1)
  1. MIRENA [Suspect]
     Active Substance: LEVONORGESTREL
     Indication: CONTRACEPTION
     Dosage: 20 MCG/24HR, CONT
     Route: 015
     Dates: start: 20040318, end: 20060607

REACTIONS (7)
  - Pain [None]
  - Injury [None]
  - Uterine perforation [None]
  - Medical device discomfort [None]
  - Procedural pain [None]
  - Scar [None]
  - Device failure [None]

NARRATIVE: CASE EVENT DATE: 20060607
